FAERS Safety Report 5860545-4 (Version None)
Quarter: 2008Q3

REPORT INFORMATION
  Report Type: 
  Country: None (occurrence: None)
  Receive Date: 20080827
  Receipt Date: 20070906
  Transmission Date: 20090109
  Serious: No
  Sender: FDA-Public Use
  Company Number: US-ABBOTT-07P-163-0416199-00

PATIENT
  Sex: Male

DRUGS (11)
  1. NIASPAN [Suspect]
     Indication: BLOOD CHOLESTEROL INCREASED
     Route: 048
     Dates: start: 20070501
  2. NIASPAN [Suspect]
     Route: 048
     Dates: start: 20020101, end: 20070501
  3. TRILEPTOL [Concomitant]
     Indication: DRUG USE FOR UNKNOWN INDICATION
  4. TRAZADINE [Concomitant]
     Indication: DRUG USE FOR UNKNOWN INDICATION
  5. RISPERDAL [Concomitant]
     Indication: DRUG USE FOR UNKNOWN INDICATION
  6. ROSUVASTATIN [Concomitant]
     Indication: DRUG USE FOR UNKNOWN INDICATION
  7. PAROXETINE HCL [Concomitant]
     Indication: DRUG USE FOR UNKNOWN INDICATION
  8. CLONOPIL [Concomitant]
     Indication: DRUG USE FOR UNKNOWN INDICATION
  9. AVANDAMET [Concomitant]
     Indication: DRUG USE FOR UNKNOWN INDICATION
  10. FLUOXETINE HCL [Concomitant]
     Indication: DRUG USE FOR UNKNOWN INDICATION
  11. OMEPRAZOLE [Concomitant]
     Indication: DYSPEPSIA

REACTIONS (3)
  - BURNING SENSATION [None]
  - DIZZINESS [None]
  - PRURITUS [None]
